FAERS Safety Report 4652635-9 (Version None)
Quarter: 2005Q2

REPORT INFORMATION
  Report Type: 
  Country: None (occurrence: None)
  Receive Date: 20050502
  Receipt Date: 20050422
  Transmission Date: 20051028
  Serious: Yes (Hospitalization)
  Sender: FDA-Public Use
  Company Number: RS005136-F

PATIENT
  Age: 73 Year
  Sex: Female

DRUGS (4)
  1. RABEPRAZOLE SODIUM [Suspect]
     Dosage: 20 MG, ORAL
     Route: 048
     Dates: start: 20050307, end: 20050320
  2. KOTOR [Suspect]
     Dates: start: 20050307, end: 20050320
  3. CARTILAMINE (GLUCOSAMINE) [Suspect]
     Dosage: 2 CP, ORAL
     Route: 048
     Dates: start: 20050307, end: 20050320
  4. ZOCOR [Concomitant]

REACTIONS (5)
  - CHILLS [None]
  - INFLAMMATION [None]
  - LEUKOCYTURIA [None]
  - RENAL FAILURE ACUTE [None]
  - SHOCK [None]
